FAERS Safety Report 6823528-3 (Version None)
Quarter: 2010Q2

REPORT INFORMATION
  Report Type: 
  Country: None (occurrence: None)
  Receive Date: 20100520
  Receipt Date: 20090928
  Transmission Date: 20101027
  Serious: Yes (Other)
  Sender: FDA-Public Use
  Company Number: 2009203770

PATIENT
  Age: 52 Year
  Sex: Female

DRUGS (6)
  1. PROVERA [Suspect]
     Indication: HORMONE REPLACEMENT THERAPY
     Dosage: ORAL
     Route: 048
     Dates: start: 19951129, end: 19960618
  2. PROVERA [Suspect]
     Indication: MENOPAUSE
     Dosage: ORAL
     Route: 048
     Dates: start: 19951129, end: 19960618
  3. PREMARIN [Suspect]
     Indication: HORMONE REPLACEMENT THERAPY
     Dates: start: 19951019, end: 19960618
  4. PREMARIN [Suspect]
     Indication: MENOPAUSE
     Dates: start: 19951019, end: 19960618
  5. PREMPRO [Suspect]
     Indication: HORMONE REPLACEMENT THERAPY
     Dates: start: 19960618, end: 19991116
  6. PREMPRO [Suspect]
     Indication: MENOPAUSE
     Dates: start: 19960618, end: 19991116

REACTIONS (1)
  - BREAST CANCER FEMALE [None]
